FAERS Safety Report 15348591 (Version 2)
Quarter: 2018Q4

REPORT INFORMATION
  Report Type: Spontaneous
  Country: US (occurrence: US)
  Receive Date: 20180904
  Receipt Date: 20181120
  Transmission Date: 20190204
  Serious: Yes (Death, Hospitalization)
  Sender: FDA-Public Use
  Company Number: US-TASMAN PHARMA, INC.-2018TSM00069

PATIENT
  Sex: Female
  Weight: 64.4 kg

DRUGS (3)
  1. UNSPECIFIED MEDICATION(S) [Concomitant]
     Active Substance: UNSPECIFIED INGREDIENT
  2. DEPAKOTE [Concomitant]
     Active Substance: DIVALPROEX SODIUM
     Dosage: UNK
     Dates: end: 2018
  3. CLOZAPINE. [Suspect]
     Active Substance: CLOZAPINE
     Indication: SCHIZOPHRENIA

REACTIONS (2)
  - Respiratory failure [Fatal]
  - Pneumonia [Unknown]
